FAERS Safety Report 10177698 (Version 1)
Quarter: 2014Q2

REPORT INFORMATION
  Report Type: Spontaneous
  Country: US (occurrence: US)
  Receive Date: 20140516
  Receipt Date: 20140516
  Transmission Date: 20141212
  Serious: No
  Sender: FDA-Public Use
  Company Number: US-SA-2014SA018633

PATIENT
  Age: 62 Year
  Sex: Female

DRUGS (2)
  1. APIDRA [Suspect]
     Indication: TYPE 1 DIABETES MELLITUS
     Dosage: PRODUCT START DATE 2 MONTHS AGO, FREQUENCY-CSII PUMP, DOSE: APPROX.40 TO 45 UNITS
     Route: 058
  2. APIDRA [Suspect]
     Indication: TYPE 1 DIABETES MELLITUS
     Dosage: PRODUCT START DATE 2 MONTHS AGO, FREQUENCY-CSII PUMP, DOSE: APPROX.40 TO 45 UNITS
     Route: 058

REACTIONS (3)
  - Fear [Not Recovered/Not Resolved]
  - Blood glucose increased [Not Recovered/Not Resolved]
  - Drug ineffective [Unknown]
